FAERS Safety Report 16386250 (Version 1)
Quarter: 2019Q2

REPORT INFORMATION
  Report Type: Spontaneous
  Country: BR (occurrence: BR)
  Receive Date: 20190603
  Receipt Date: 20190603
  Transmission Date: 20190711
  Serious: Yes (Hospitalization, Other)
  Sender: FDA-Public Use
  Company Number: BR-TOPROL ACQUISITION LLC-2019-TOP-000262

PATIENT
  Age: 67 Year
  Sex: Male
  Weight: 60 kg

DRUGS (13)
  1. CLOPIDOGREL [Concomitant]
     Active Substance: CLOPIDOGREL BISULFATE
     Indication: INFARCTION
     Dosage: 75 MG, QD
     Route: 048
     Dates: start: 201904
  2. SELOKEN (METOPROLOL TARTRATE) [Suspect]
     Active Substance: METOPROLOL TARTRATE
     Indication: INFARCTION
     Dosage: 100 MG, QD
     Route: 048
     Dates: start: 201904, end: 201905
  3. ASPIRINA [Concomitant]
     Active Substance: ASPIRIN
     Indication: INFARCTION
     Dosage: 100 MG, QD
     Route: 048
     Dates: start: 201808
  4. ATENOLOL. [Suspect]
     Active Substance: ATENOLOL
     Indication: INFARCTION
     Dosage: 25 MG, HS
     Route: 048
     Dates: start: 201808, end: 201904
  5. CRESTOR [Suspect]
     Active Substance: ROSUVASTATIN CALCIUM
     Indication: BLOOD TRIGLYCERIDES ABNORMAL
     Dosage: 20 MG, QD
     Route: 048
     Dates: start: 201904, end: 201905
  6. CRESTOR [Suspect]
     Active Substance: ROSUVASTATIN CALCIUM
     Dosage: 80 MG, QD
     Route: 048
  7. CRESTOR [Suspect]
     Active Substance: ROSUVASTATIN CALCIUM
     Dosage: 40 MG, QD
     Route: 048
     Dates: start: 201905
  8. ENALAPRIL [Concomitant]
     Active Substance: ENALAPRIL
     Indication: HYPERTENSION
     Dosage: 5 MG, QD
     Route: 048
     Dates: start: 201904
  9. PURAN [Concomitant]
     Active Substance: LEVOTHYROXINE SODIUM
     Indication: HYPOTHYROIDISM
     Dosage: 50 ?G, QD
     Route: 048
  10. CRESTOR [Suspect]
     Active Substance: ROSUVASTATIN CALCIUM
     Indication: BLOOD CHOLESTEROL ABNORMAL
     Dosage: 20 MG, HS
     Route: 048
     Dates: start: 201808, end: 201904
  11. VASTAREL [Suspect]
     Active Substance: TRIMETAZIDINE DIHYDROCHLORIDE
     Indication: INFARCTION
     Dosage: 35 MG, QD
     Route: 048
  12. METOPROLOL SUCCINATE. [Suspect]
     Active Substance: METOPROLOL SUCCINATE
     Indication: INFARCTION
     Dosage: 100 MG, QD
     Route: 048
     Dates: start: 201905
  13. CARDIZEM [Concomitant]
     Active Substance: DILTIAZEM HYDROCHLORIDE
     Indication: INFARCTION
     Dosage: 30 MG, QD
     Route: 048
     Dates: start: 201808, end: 201904

REACTIONS (7)
  - Off label use [Recovered/Resolved]
  - Angina pectoris [Recovered/Resolved]
  - Hyperhidrosis [Recovered/Resolved]
  - Dysgeusia [Not Recovered/Not Resolved]
  - Malaise [Recovered/Resolved]
  - Paraesthesia [Recovered/Resolved]
  - Acute myocardial infarction [Recovered/Resolved]

NARRATIVE: CASE EVENT DATE: 201904
